FAERS Safety Report 14845035 (Version 1)
Quarter: 2018Q2

REPORT INFORMATION
  Report Type: Spontaneous
  Country: JP (occurrence: JP)
  Receive Date: 20180504
  Receipt Date: 20180504
  Transmission Date: 20180711
  Serious: Yes (Other)
  Sender: FDA-Public Use
  Company Number: JP-UCBSA-028675

PATIENT
  Age: 53 Year
  Sex: Male
  Weight: 76 kg

DRUGS (4)
  1. PHENYTOIN. [Concomitant]
     Active Substance: PHENYTOIN
     Indication: TEMPORAL LOBE EPILEPSY
     Route: 048
     Dates: start: 1992
  2. DEPAKENE [Concomitant]
     Active Substance: VALPROIC ACID
     Indication: TEMPORAL LOBE EPILEPSY
     Route: 048
     Dates: start: 200802
  3. E KEPPRA [Suspect]
     Active Substance: LEVETIRACETAM
     Indication: TEMPORAL LOBE EPILEPSY
     Dosage: 250 MG, ONCE DAILY (QD)
     Route: 048
     Dates: start: 20110112, end: 20110207
  4. E KEPPRA [Suspect]
     Active Substance: LEVETIRACETAM
     Dosage: 250 MG, 2X/DAY (BID)
     Route: 048
     Dates: start: 20110208, end: 20110224

REACTIONS (3)
  - Epilepsy [Recovered/Resolved]
  - Anticonvulsant drug level decreased [Recovered/Resolved]
  - Urinary incontinence [Recovered/Resolved]

NARRATIVE: CASE EVENT DATE: 20110207
